FAERS Safety Report 9176454 (Version 2)
Quarter: 2013Q4

REPORT INFORMATION
  Report Type: Spontaneous
  Country: GB (occurrence: GB)
  Receive Date: 20130321
  Receipt Date: 20131118
  Transmission Date: 20140711
  Serious: Yes (Disabling)
  Sender: FDA-Public Use
  Company Number: GB-RANBAXY-2013R1-66213

PATIENT
  Age: 70 Year
  Sex: Female
  Weight: 59 kg

DRUGS (1)
  1. ATORVASTATIN [Suspect]
     Indication: BLOOD CHOLESTEROL INCREASED
     Dosage: 40MG, 1 DAYS
     Route: 048
     Dates: start: 201205, end: 201212

REACTIONS (5)
  - Activities of daily living impaired [Recovered/Resolved]
  - Muscle disorder [Recovered/Resolved]
  - Muscular weakness [Recovered/Resolved]
  - Product substitution issue [Unknown]
  - Gait disturbance [Recovered/Resolved]
